FAERS Safety Report 8203800-5 (Version None)
Quarter: 2012Q1

REPORT INFORMATION
  Report Type: 
  Country: None (occurrence: None)
  Receive Date: 20120308
  Receipt Date: 20120224
  Transmission Date: 20120608
  Serious: Yes (Hospitalization)
  Sender: FDA-Public Use
  Company Number: 2012SP010643

PATIENT
  Sex: Female

DRUGS (1)
  1. SYCREST (ASENAPINE/05706901/) [Suspect]
     Indication: BIPOLAR I DISORDER
     Dosage: UNK;PO
     Route: 048
     Dates: start: 20120201

REACTIONS (2)
  - PSYCHOTIC DISORDER [None]
  - SUICIDAL BEHAVIOUR [None]
